FAERS Safety Report 9699204 (Version 2)
Quarter: 2015Q3

REPORT INFORMATION
  Report Type: Spontaneous
  Country: US (occurrence: US)
  Receive Date: 20131120
  Receipt Date: 20150803
  Transmission Date: 20151125
  Serious: No
  Sender: FDA-Public Use
  Company Number: US-GILEAD-2008-0015114

PATIENT
  Age: 56 Year
  Sex: Female
  Weight: 113.4 kg

DRUGS (36)
  1. NEURONTIN [Concomitant]
     Active Substance: GABAPENTIN
     Route: 048
  2. METHOCARBAMOL. [Concomitant]
     Active Substance: METHOCARBAMOL
     Route: 048
  3. CELEXA [Concomitant]
     Active Substance: CITALOPRAM HYDROBROMIDE
     Route: 048
  4. BUMEX [Concomitant]
     Active Substance: BUMETANIDE
     Route: 048
  5. RHINOCORT [Concomitant]
     Active Substance: BUDESONIDE
     Route: 045
  6. LORAZEPAM. [Concomitant]
     Active Substance: LORAZEPAM
     Route: 048
  7. LETAIRIS [Suspect]
     Active Substance: AMBRISENTAN
     Indication: PULMONARY ARTERIAL HYPERTENSION
     Route: 048
     Dates: start: 20080104, end: 20080124
  8. OXYGEN. [Concomitant]
     Active Substance: OXYGEN
     Route: 045
  9. ZAROXOLYN [Concomitant]
     Active Substance: METOLAZONE
     Route: 048
  10. SPIRONOLACTONE. [Concomitant]
     Active Substance: SPIRONOLACTONE
     Route: 048
  11. TYLENOL EXTRA STRENGTH [Concomitant]
     Active Substance: ACETAMINOPHEN
     Route: 048
  12. PLAQUENIL [Concomitant]
     Active Substance: HYDROXYCHLOROQUINE SULFATE
     Route: 048
  13. PREVACID [Concomitant]
     Active Substance: LANSOPRAZOLE
     Route: 048
  14. NYSTATIN. [Concomitant]
     Active Substance: NYSTATIN
     Route: 048
  15. KLOR-CON [Concomitant]
     Active Substance: POTASSIUM CHLORIDE
     Route: 048
  16. IMURAN [Concomitant]
     Active Substance: AZATHIOPRINE
     Route: 048
  17. REMERON [Concomitant]
     Active Substance: MIRTAZAPINE
     Route: 048
  18. HUMULIN N [Concomitant]
     Active Substance: INSULIN HUMAN
     Route: 058
  19. LACTULOSE. [Concomitant]
     Active Substance: LACTULOSE
     Route: 048
  20. COZAAR [Concomitant]
     Active Substance: LOSARTAN POTASSIUM
     Route: 048
  21. COMPAZINE [Concomitant]
     Active Substance: PROCHLORPERAZINE MALEATE
     Route: 048
  22. BYETTA [Concomitant]
     Active Substance: EXENATIDE
     Route: 058
  23. HEPARIN [Concomitant]
     Active Substance: HEPARIN SODIUM
     Route: 042
  24. OSCAL [Concomitant]
     Active Substance: CALCIUM CARBONATE
     Route: 048
  25. MORPHINE [Concomitant]
     Active Substance: MORPHINE
     Route: 048
  26. OXYCONTIN [Concomitant]
     Active Substance: OXYCODONE HYDROCHLORIDE
     Route: 048
  27. MAG-OXIDE [Concomitant]
     Route: 048
  28. REVATIO [Concomitant]
     Active Substance: SILDENAFIL CITRATE
     Route: 048
  29. ATENOLOL. [Concomitant]
     Active Substance: ATENOLOL
     Route: 048
  30. TRAZODONE [Concomitant]
     Active Substance: TRAZODONE HYDROCHLORIDE
     Route: 048
  31. IRON [Concomitant]
     Active Substance: IRON
     Route: 048
  32. FLOLAN [Concomitant]
     Active Substance: EPOPROSTENOL SODIUM
     Route: 042
  33. ASTELIN [Concomitant]
     Active Substance: AZELASTINE HYDROCHLORIDE
     Route: 055
  34. PREDNISONE. [Concomitant]
     Active Substance: PREDNISONE
     Route: 048
  35. BONIVA [Concomitant]
     Active Substance: IBANDRONATE SODIUM
     Route: 048
  36. GLUCOTROL [Concomitant]
     Active Substance: GLIPIZIDE
     Route: 048

REACTIONS (2)
  - Inflammation [Unknown]
  - Nasal disorder [Unknown]
